FAERS Safety Report 6936596-5 (Version None)
Quarter: 2010Q3

REPORT INFORMATION
  Report Type: 
  Country: None (occurrence: None)
  Receive Date: 20100823
  Receipt Date: 20100812
  Transmission Date: 20110219
  Serious: Yes (Disabling)
  Sender: FDA-Public Use
  Company Number: GB-JNJFOC-20100702905

PATIENT
  Sex: Female

DRUGS (7)
  1. DARUNAVIR [Suspect]
     Indication: HIV INFECTION
     Route: 048
  2. RITONAVIR [Suspect]
     Indication: HIV INFECTION
     Route: 048
  3. AMLODIPINE [Interacting]
     Indication: HYPERTENSION
     Route: 065
  4. AMLODIPINE [Interacting]
     Route: 065
  5. DAPSONE [Concomitant]
     Indication: INFECTION PROPHYLAXIS
     Route: 048
  6. COTRIM [Concomitant]
     Indication: INFECTION PROPHYLAXIS
     Route: 065
  7. KIVEXA [Concomitant]
     Indication: HIV INFECTION
     Route: 065

REACTIONS (2)
  - DRUG INTERACTION [None]
  - OEDEMA PERIPHERAL [None]
